FAERS Safety Report 8784357 (Version 6)
Quarter: 2013Q3

REPORT INFORMATION
  Report Type: Spontaneous
  Country: US (occurrence: US)
  Receive Date: 20120913
  Receipt Date: 20130705
  Transmission Date: 20140515
  Serious: Yes (Hospitalization, Other)
  Sender: FDA-Public Use
  Company Number: US-009507513-1202USA01298

PATIENT
  Sex: Female
  Weight: 66.21 kg

DRUGS (5)
  1. FOSAMAX [Suspect]
     Indication: OSTEOPENIA
     Dosage: 70 MG, QW
     Route: 048
     Dates: start: 1998, end: 200802
  2. FOSAMAX [Suspect]
     Indication: OSTEOPOROSIS PROPHYLAXIS
  3. FOSAMAX [Suspect]
     Indication: OSTEOPENIA
     Dosage: 70 MG, QW
     Route: 048
     Dates: start: 200802, end: 200808
  4. FOSAMAX [Suspect]
     Indication: OSTEOPOROSIS PROPHYLAXIS
  5. ALENDRONATE SODIUM [Suspect]
     Dosage: 70 MG, QW
     Route: 048

REACTIONS (16)
  - Femur fracture [Unknown]
  - Open reduction of fracture [Unknown]
  - Follicular thyroid cancer [Unknown]
  - Fall [Unknown]
  - Laceration [Unknown]
  - Fibula fracture [Unknown]
  - Weight bearing difficulty [Recovered/Resolved]
  - Hypothyroidism [Unknown]
  - Hypertension [Unknown]
  - Herpes virus infection [Unknown]
  - Vitamin D deficiency [Unknown]
  - Anaemia [Unknown]
  - Osteoporosis [Unknown]
  - Sinus disorder [Unknown]
  - Bone pain [Recovered/Resolved]
  - Diarrhoea [Unknown]
